FAERS Safety Report 24162834 (Version 4)
Quarter: 2024Q4

REPORT INFORMATION
  Report Type: Spontaneous
  Country: US (occurrence: US)
  Receive Date: 20240801
  Receipt Date: 20241217
  Transmission Date: 20250115
  Serious: Yes (Other)
  Sender: PFIZER
  Company Number: US-PFIZER INC-PV202400099935

PATIENT
  Age: 69 Year
  Sex: Female

DRUGS (1)
  1. TUKYSA [Suspect]
     Active Substance: TUCATINIB
     Indication: Neoplasm malignant
     Dosage: 150MG, TWO TABLETS TWICE A DAY
     Route: 048
     Dates: start: 202403

REACTIONS (4)
  - Neuropathy peripheral [Unknown]
  - Arthritis [Unknown]
  - Intentional product use issue [Unknown]
  - Off label use [Unknown]
